FAERS Safety Report 5013302-5 (Version None)
Quarter: 2006Q2

REPORT INFORMATION
  Report Type: 
  Country: None (occurrence: None)
  Receive Date: 20060530
  Receipt Date: 20060404
  Transmission Date: 20061013
  Serious: Yes (Life-Threatening)
  Sender: FDA-Public Use
  Company Number: US-GLAXOSMITHKLINE-A0600814A

PATIENT
  Age: 19 Year
  Sex: Female

DRUGS (4)
  1. WELLBUTRIN XL [Suspect]
     Indication: DEPRESSION
     Dosage: 300MG PER DAY
     Route: 048
     Dates: start: 20040101, end: 20060101
  2. IMITREX [Concomitant]
  3. AMBIEN [Concomitant]
  4. BIRTH CONTROL PILLS [Concomitant]

REACTIONS (1)
  - CONVULSION [None]
